FAERS Safety Report 6602679-2 (Version None)
Quarter: 2010Q1

REPORT INFORMATION
  Report Type: 
  Country: None (occurrence: None)
  Receive Date: 20100218
  Receipt Date: 20100209
  Transmission Date: 20100710
  Serious: Yes (Other)
  Sender: FDA-Public Use
  Company Number: 506930

PATIENT
  Age: 69 Year
  Sex: Male

DRUGS (8)
  1. VINORELBINE TARTRATE [Suspect]
     Indication: NON-SMALL CELL LUNG CANCER
     Dosage: 200 MG/M2
  2. CISPLATIN [Suspect]
     Indication: NON-SMALL CELL LUNG CANCER
     Dosage: 300 MG/M2
  3. (METOPROLOL) [Concomitant]
  4. FOLIC ACID [Concomitant]
  5. ASPIRIN [Concomitant]
  6. ESCITALOPRAM [Concomitant]
  7. TAMSULOSIN HCL [Concomitant]
  8. (TIOTROPIUM) [Concomitant]

REACTIONS (7)
  - ACUTE MYELOID LEUKAEMIA [None]
  - AUTOSOMAL CHROMOSOME ANOMALY [None]
  - BLAST CELL COUNT INCREASED [None]
  - FATIGUE [None]
  - HAEMOGLOBIN DECREASED [None]
  - PSEUDOMONAL BACTERAEMIA [None]
  - SEPTIC SHOCK [None]
